FAERS Safety Report 14058874 (Version 1)
Quarter: 2017Q4

REPORT INFORMATION
  Report Type: Spontaneous
  Country: None (occurrence: US)
  Receive Date: 20171006
  Receipt Date: 20171006
  Transmission Date: 20180321
  Serious: No
  Sender: FDA-Public Use
  Company Number: US-MEDAC PHARMA, INC.-2029172

PATIENT
  Age: 54 Year
  Sex: Female
  Weight: 117.5 kg

DRUGS (5)
  1. LEVOTHYROXINE. [Concomitant]
     Active Substance: LEVOTHYROXINE
  2. TRAMADOL. [Concomitant]
     Active Substance: TRAMADOL
  3. RASUVO [Suspect]
     Active Substance: METHOTREXATE SODIUM
     Indication: RHEUMATOID ARTHRITIS
     Dates: start: 20170103
  4. PRAVASTATIN. [Concomitant]
     Active Substance: PRAVASTATIN
  5. FOLIC ACID. [Concomitant]
     Active Substance: FOLIC ACID

REACTIONS (3)
  - Injection site pain [Not Recovered/Not Resolved]
  - Injection site joint pain [Not Recovered/Not Resolved]
  - Drug administered at inappropriate site [Unknown]
